FAERS Safety Report 8911177 (Version 2)
Quarter: 2013Q4

REPORT INFORMATION
  Report Type: Spontaneous
  Country: US (occurrence: US)
  Receive Date: 20121116
  Receipt Date: 20131217
  Transmission Date: 20140711
  Serious: No
  Sender: FDA-Public Use
  Company Number: US-GLAXOSMITHKLINE-A0988829A

PATIENT
  Age: 33 Year
  Sex: Male

DRUGS (4)
  1. VOTRIENT [Suspect]
     Indication: SARCOMA
     Dosage: 800MG PER DAY
     Route: 048
     Dates: start: 20120705
  2. CHEMOTHERAPY [Suspect]
     Indication: PRODUCT USED FOR UNKNOWN INDICATION
     Route: 065
  3. METOPROLOL [Concomitant]
  4. CENTRUM [Concomitant]

REACTIONS (4)
  - Diarrhoea [Unknown]
  - Hair colour changes [Unknown]
  - Hypoaesthesia [Unknown]
  - Vomiting [Unknown]
